FAERS Safety Report 10300057 (Version 2)
Quarter: 2014Q3

REPORT INFORMATION
  Report Type: Report from Study
  Country: CA (occurrence: CA)
  Receive Date: 20140711
  Receipt Date: 20140721
  Transmission Date: 20150326
  Serious: Yes (Hospitalization)
  Sender: FDA-Public Use
  Company Number: CA-ABBVIE-14K-028-1257536-00

PATIENT
  Sex: Female
  Weight: 82 kg

DRUGS (2)
  1. KALETRA [Suspect]
     Active Substance: LOPINAVIR\RITONAVIR
     Indication: ANTIRETROVIRAL THERAPY
     Dosage: UNIT DOSE: 400MG/100 MGFORM STRENGTH: 200MG/50 MG
     Route: 048
     Dates: start: 2008
  2. TRUVADA [Concomitant]
     Active Substance: EMTRICITABINE\TENOFOVIR DISOPROXIL FUMARATE
     Indication: HIV INFECTION
     Dosage: UNIT DOSE : 200/300 MG
     Route: 048

REACTIONS (7)
  - Renal impairment [Unknown]
  - Peripheral swelling [Recovering/Resolving]
  - Foreign body [Unknown]
  - Proteinuria [Unknown]
  - Fall [Unknown]
  - Pain in extremity [Recovering/Resolving]
  - Platelet count decreased [Recovering/Resolving]
